FAERS Safety Report 7124482-X (Version None)
Quarter: 2010Q4

REPORT INFORMATION
  Report Type: 
  Country: None (occurrence: None)
  Receive Date: 20101128
  Receipt Date: 20101115
  Transmission Date: 20110411
  Serious: Yes (Hospitalization)
  Sender: FDA-Public Use
  Company Number: JP-ALLERGAN-0710372US

PATIENT
  Age: 45 Year
  Sex: Male
  Weight: 1 kg

DRUGS (11)
  1. BOTULINUM TOXIN TYPE A [Suspect]
     Indication: TORTICOLLIS
     Dosage: 75 UNITS, SINGLE
     Route: 030
     Dates: start: 20061018, end: 20061018
  2. BOTULINUM TOXIN TYPE A [Suspect]
     Dosage: 55 UNITS, SINGLE
     Route: 030
     Dates: start: 20060718, end: 20060718
  3. BOTULINUM TOXIN TYPE A [Suspect]
     Dosage: 70 UNITS, SINGLE
     Route: 030
     Dates: start: 20070202, end: 20070202
  4. BOTULINUM TOXIN TYPE A [Suspect]
     Dosage: 82.5 UNITS, SINGLE
     Route: 030
     Dates: start: 20070514, end: 20070514
  5. BOTULINUM TOXIN TYPE A [Suspect]
     Dosage: 90 UNITS, SINGLE
     Route: 030
     Dates: start: 20070829, end: 20070829
  6. DIAZEPAM [Concomitant]
     Indication: MUSCLE TIGHTNESS
     Dosage: 6 MG, QD
     Route: 048
  7. BACLOFEN [Concomitant]
     Indication: MUSCLE TIGHTNESS
     Dosage: 15 MG, QD
     Route: 048
  8. DANTROLENE SODIUM [Concomitant]
     Indication: MUSCLE TIGHTNESS
     Dosage: 15 MG, QD
     Route: 048
  9. CARBAMAZEPINE [Concomitant]
     Indication: CONVULSION
     Dosage: 150 MG, QD
     Route: 048
  10. VALPROATE SODIUM [Concomitant]
     Indication: CONVULSION
     Dosage: 300 MG, QD
     Route: 048
  11. PHENOBARBITAL [Concomitant]
     Indication: CONVULSION
     Dosage: 30 MG, QD
     Route: 048

REACTIONS (3)
  - GASTROENTERITIS [None]
  - PNEUMONIA [None]
  - RESPIRATORY TRACT INFECTION [None]
